FAERS Safety Report 19635905 (Version 2)
Quarter: 2021Q3

REPORT INFORMATION
  Report Type: Spontaneous
  Country: IN (occurrence: IN)
  Receive Date: 20210730
  Receipt Date: 20210804
  Transmission Date: 20211014
  Serious: Yes (Death, Life-Threatening, Hospitalization, Other)
  Sender: FDA-Public Use
  Company Number: IN-PFIZER INC-202100933360

PATIENT
  Age: 34 Year
  Sex: Female

DRUGS (2)
  1. DOXORUBICIN HCL [Suspect]
     Active Substance: DOXORUBICIN HYDROCHLORIDE
     Indication: BREAST CANCER
     Dosage: UNK, CYCLIC
  2. CYCLOPHOSPHAMIDE. [Suspect]
     Active Substance: CYCLOPHOSPHAMIDE
     Indication: BREAST CANCER
     Dosage: UNK, CYCLIC

REACTIONS (8)
  - Abdominal pain [Unknown]
  - Exposure during pregnancy [Unknown]
  - Seizure [Unknown]
  - Electrolyte imbalance [Unknown]
  - Drug ineffective [Unknown]
  - Asthenia [Unknown]
  - Adrenal insufficiency [Fatal]
  - Acute kidney injury [Unknown]
